FAERS Safety Report 6975002-1 (Version None)
Quarter: 2010Q3

REPORT INFORMATION
  Report Type: 
  Country: None (occurrence: None)
  Receive Date: 20100910
  Receipt Date: 20090121
  Transmission Date: 20110219
  Serious: No
  Sender: FDA-Public Use
  Company Number: US-WYE-H07813809

PATIENT
  Sex: Female
  Weight: 52.21 kg

DRUGS (3)
  1. PRISTIQ [Suspect]
     Indication: ANXIETY
     Route: 048
     Dates: start: 20080701
  2. KLONOPIN [Concomitant]
  3. VIVELLE [Concomitant]

REACTIONS (3)
  - DYSPNOEA [None]
  - PALPITATIONS [None]
  - UNEVALUABLE EVENT [None]
